FAERS Safety Report 10044180 (Version 2)
Quarter: 2014Q1

REPORT INFORMATION
  Report Type: Spontaneous
  Country: GB (occurrence: GB)
  Receive Date: 20140328
  Receipt Date: 20140328
  Transmission Date: 20141002
  Serious: Yes (Hospitalization)
  Sender: FDA-Public Use
  Company Number: GB-ELI_LILLY_AND_COMPANY-GB201402002635

PATIENT
  Sex: Female

DRUGS (1)
  1. OLANZAPINE [Suspect]
     Indication: BIPOLAR DISORDER
     Dosage: 1 DF, UNKNOWN
     Route: 048

REACTIONS (2)
  - General physical health deterioration [Unknown]
  - Diet refusal [Unknown]
